FAERS Safety Report 6419932-8 (Version None)
Quarter: 2009Q4

REPORT INFORMATION
  Report Type: 
  Country: None (occurrence: None)
  Receive Date: 20091029
  Receipt Date: 20091022
  Transmission Date: 20100525
  Serious: Yes (Other)
  Sender: FDA-Public Use
  Company Number: US-SANOFI-SYNTHELABO-A03200904083

PATIENT
  Sex: Female
  Weight: 83.9 kg

DRUGS (23)
  1. PLAVIX [Suspect]
     Indication: STENT PLACEMENT
     Route: 048
     Dates: start: 20080301, end: 20090912
  2. MAGNESIUM [Concomitant]
     Indication: DRUG USE FOR UNKNOWN INDICATION
     Dosage: 2 A DAY
     Route: 065
  3. CALCIUM [Concomitant]
     Indication: DRUG USE FOR UNKNOWN INDICATION
     Route: 065
  4. CARBIDOPA-LEVODOPA [Concomitant]
     Indication: PAIN IN EXTREMITY
     Route: 065
  5. ALPHA LIPOIC [Concomitant]
     Indication: NEURALGIA
     Dosage: ONE A DAY
     Route: 065
  6. VITAMIN B COMPLEX CAP [Concomitant]
     Indication: NEURALGIA
     Dosage: ONCE A DAY
     Route: 065
  7. ORPHENADRINE CITRATE [Concomitant]
     Indication: DRUG USE FOR UNKNOWN INDICATION
     Dosage: 100 MG TWICE A DAY WHEN NEEDED
     Route: 065
  8. IBUPROFEN [Concomitant]
     Indication: PAIN
     Route: 065
  9. PANTOPRAZOLE [Concomitant]
     Indication: DYSPEPSIA
     Dosage: 40 MG  HALF TO 1 A DAY
     Route: 065
  10. FUROSEMIDE [Concomitant]
     Indication: DRUG USE FOR UNKNOWN INDICATION
     Route: 065
  11. COLCHICINE [Concomitant]
     Indication: GOUT
     Route: 065
  12. TYLENOL [Concomitant]
     Indication: DRUG USE FOR UNKNOWN INDICATION
     Route: 065
  13. FERROUS SULFATE TAB [Concomitant]
     Indication: DRUG USE FOR UNKNOWN INDICATION
     Route: 065
  14. METOPROLOL [Concomitant]
     Indication: DRUG USE FOR UNKNOWN INDICATION
     Route: 065
  15. ALLOPURINOL [Concomitant]
     Indication: GOUT
     Route: 065
  16. POTASSIUM CHLORIDE [Concomitant]
     Indication: DRUG USE FOR UNKNOWN INDICATION
     Route: 065
  17. GABAPENTIN [Concomitant]
     Indication: BACK DISORDER
     Route: 065
  18. GABAPENTIN [Concomitant]
     Route: 048
  19. ISOSORBIDE [Concomitant]
     Indication: CARDIAC DISORDER
     Route: 065
  20. METFORMIN HCL [Concomitant]
     Indication: DIABETES MELLITUS
     Route: 065
  21. COZAAR [Concomitant]
     Indication: CARDIAC DISORDER
     Route: 065
  22. COZAAR [Concomitant]
     Indication: BLOOD PRESSURE ABNORMAL
     Route: 065
  23. DIGOXIN [Concomitant]
     Indication: CARDIAC DISORDER
     Route: 065

REACTIONS (8)
  - ABDOMINAL DISTENSION [None]
  - BREAST CYST [None]
  - CONTUSION [None]
  - DIARRHOEA [None]
  - EPISTAXIS [None]
  - HAEMORRHAGE [None]
  - HEPATOSPLENOMEGALY [None]
  - PLATELET COUNT DECREASED [None]
